FAERS Safety Report 6330737-9 (Version None)
Quarter: 2009Q3

REPORT INFORMATION
  Report Type: 
  Country: None (occurrence: None)
  Receive Date: 20090827
  Receipt Date: 20090818
  Transmission Date: 20100115
  Serious: Yes (Death)
  Sender: FDA-Public Use
  Company Number: PE-PFIZER INC-2009257962

PATIENT
  Age: 91 Year

DRUGS (1)
  1. NORVASC [Suspect]
     Route: 048
     Dates: start: 20090619

REACTIONS (1)
  - DEATH [None]
